FAERS Safety Report 25766268 (Version 1)
Quarter: 2025Q3

REPORT INFORMATION
  Report Type: Other
  Country: DZ (occurrence: DZ)
  Receive Date: 20250905
  Receipt Date: 20250905
  Transmission Date: 20251020
  Serious: Yes (Hospitalization)
  Sender: ANI
  Company Number: DZ-ANIPHARMA-030449

PATIENT
  Age: 79 Year
  Sex: Male

DRUGS (4)
  1. VANCOMYCIN [Suspect]
     Active Substance: VANCOMYCIN
     Indication: Endocarditis
  2. GENTAMICIN [Concomitant]
     Active Substance: GENTAMICIN
     Indication: Endocarditis
  3. DOXYCYCLINE [Concomitant]
     Active Substance: DOXYCYCLINE
     Indication: Q fever
  4. LEVOFLOXACIN [Concomitant]
     Active Substance: LEVOFLOXACIN
     Indication: Q fever

REACTIONS (1)
  - Condition aggravated [Unknown]
